FAERS Safety Report 7770865-4 (Version None)
Quarter: 2011Q3

REPORT INFORMATION
  Report Type: 
  Country: None (occurrence: None)
  Receive Date: 20110922
  Receipt Date: 20110106
  Transmission Date: 20111222
  Serious: No
  Sender: FDA-Public Use
  Company Number: US-ASTRAZENECA-2011SE00805

PATIENT
  Age: 47 Year
  Sex: Male

DRUGS (9)
  1. SEROQUEL [Suspect]
     Indication: OBSESSIVE-COMPULSIVE DISORDER
     Route: 048
  2. SEROQUEL [Suspect]
     Route: 048
  3. SEROQUEL [Suspect]
     Indication: DEPRESSION
     Route: 048
  4. LORAZEPAM [Concomitant]
  5. SEROQUEL [Suspect]
     Indication: BIPOLAR DISORDER
     Route: 048
  6. SEROQUEL [Suspect]
     Route: 048
  7. LEXAPRO [Concomitant]
  8. SEROQUEL [Suspect]
     Route: 048
  9. CLOZAPINE [Concomitant]
     Dates: end: 20080101

REACTIONS (4)
  - ASTHENIA [None]
  - GAIT DISTURBANCE [None]
  - DRUG PRESCRIBING ERROR [None]
  - TARDIVE DYSKINESIA [None]
